FAERS Safety Report 25851100 (Version 1)
Quarter: 2025Q3

REPORT INFORMATION
  Report Type: Spontaneous
  Country: EU (occurrence: EU)
  Receive Date: 20250926
  Receipt Date: 20250926
  Transmission Date: 20251021
  Serious: Yes (Life-Threatening, Hospitalization, Congenital Anomaly, Other)
  Sender: AUROBINDO
  Company Number: EU-AFSSAPS-NT2025000923

PATIENT
  Sex: Male
  Weight: 4.205 kg

DRUGS (1)
  1. SERTRALINE [Suspect]
     Active Substance: SERTRALINE HYDROCHLORIDE
     Indication: Panic attack
     Dosage: 50 MILLIGRAM, ONCE A DAY
     Route: 064
     Dates: end: 20250719

REACTIONS (4)
  - Anomaly of external ear congenital [Not Recovered/Not Resolved]
  - Neonatal respiratory depression [Recovered/Resolved]
  - Hypoglycaemia neonatal [Recovered/Resolved]
  - Perinatal stroke [Recovered/Resolved with Sequelae]

NARRATIVE: CASE EVENT DATE: 20250719
